FAERS Safety Report 20216056 (Version 12)
Quarter: 2023Q1

REPORT INFORMATION
  Report Type: Report from Study
  Country: CN (occurrence: None)
  Receive Date: 20211222
  Receipt Date: 20230316
  Transmission Date: 20230418
  Serious: Yes (Hospitalization)
  Sender: FDA-Public Use
  Company Number: CN-ROCHE-2982452

PATIENT
  Age: 64 Year
  Sex: Male
  Weight: 60 kg

DRUGS (56)
  1. ATEZOLIZUMAB [Suspect]
     Active Substance: ATEZOLIZUMAB
     Indication: Small cell lung cancer extensive stage
     Route: 041
     Dates: start: 20210910
  2. BEVACIZUMAB [Suspect]
     Active Substance: BEVACIZUMAB
     Indication: Small cell lung cancer extensive stage
     Dosage: DATE OF MOST RECENT DOSE OF BEVACIZUMAB/PLACEBO PRIOR TO AE ONSET: 21/OCT/2021
     Route: 042
     Dates: start: 20210910
  3. CARBOPLATIN [Suspect]
     Active Substance: CARBOPLATIN
     Indication: Small cell lung cancer extensive stage
     Dosage: OVER 30 TO 60 MINUTES TO ACHIEVE AN INITIAL TARGET AREA UNDER THE CONCENTRATION-TIME CURVE (AUC) OF
     Route: 042
     Dates: start: 20210910
  4. ETOPOSIDE [Suspect]
     Active Substance: ETOPOSIDE
     Indication: Small cell lung cancer extensive stage
     Route: 042
     Dates: start: 20210910
  5. RAMOSETRON HYDROCHLORIDE [Concomitant]
     Active Substance: RAMOSETRON HYDROCHLORIDE
     Dates: start: 20210910, end: 20210912
  6. RAMOSETRON HYDROCHLORIDE [Concomitant]
     Active Substance: RAMOSETRON HYDROCHLORIDE
     Dates: start: 20210928, end: 20211001
  7. RAMOSETRON HYDROCHLORIDE [Concomitant]
     Active Substance: RAMOSETRON HYDROCHLORIDE
     Route: 042
     Dates: start: 20211110, end: 20211113
  8. RAMOSETRON HYDROCHLORIDE [Concomitant]
     Active Substance: RAMOSETRON HYDROCHLORIDE
     Dates: start: 20210929
  9. VITAMIN B6 [Concomitant]
     Active Substance: PYRIDOXINE HYDROCHLORIDE
     Dates: start: 20210910, end: 20210912
  10. VITAMIN B6 [Concomitant]
     Active Substance: PYRIDOXINE HYDROCHLORIDE
     Dates: start: 20210928, end: 20211001
  11. VITAMIN B6 [Concomitant]
     Active Substance: PYRIDOXINE HYDROCHLORIDE
     Dates: start: 20211113
  12. VITAMIN B6 [Concomitant]
     Active Substance: PYRIDOXINE HYDROCHLORIDE
     Dates: start: 20210929
  13. VITAMIN B6 [Concomitant]
     Active Substance: PYRIDOXINE HYDROCHLORIDE
     Route: 042
     Dates: start: 20211110, end: 20211113
  14. POTASSIUM CHLORIDE [Concomitant]
     Active Substance: POTASSIUM CHLORIDE
     Dates: start: 20210910, end: 20210912
  15. POTASSIUM CHLORIDE [Concomitant]
     Active Substance: POTASSIUM CHLORIDE
     Dates: start: 20210928, end: 20211001
  16. POTASSIUM CHLORIDE [Concomitant]
     Active Substance: POTASSIUM CHLORIDE
     Dates: start: 20210929
  17. POTASSIUM CHLORIDE [Concomitant]
     Active Substance: POTASSIUM CHLORIDE
     Route: 042
     Dates: start: 20211110, end: 20211113
  18. CIMETIDINE [Concomitant]
     Active Substance: CIMETIDINE
     Dates: start: 20210910, end: 20210912
  19. CIMETIDINE [Concomitant]
     Active Substance: CIMETIDINE
     Dates: start: 20210928, end: 20211001
  20. CIMETIDINE [Concomitant]
     Active Substance: CIMETIDINE
     Dates: start: 20210929
  21. CIMETIDINE [Concomitant]
     Active Substance: CIMETIDINE
     Route: 042
     Dates: start: 20211203, end: 20211203
  22. CIMETIDINE [Concomitant]
     Active Substance: CIMETIDINE
     Route: 042
     Dates: start: 20211110, end: 20211113
  23. SODIUM BICARBONATE [Concomitant]
     Active Substance: SODIUM BICARBONATE
     Dates: start: 20210910, end: 20210912
  24. SODIUM BICARBONATE [Concomitant]
     Active Substance: SODIUM BICARBONATE
     Dates: start: 20210928, end: 20211001
  25. SODIUM BICARBONATE [Concomitant]
     Active Substance: SODIUM BICARBONATE
     Route: 042
     Dates: start: 20211110, end: 20211113
  26. SODIUM BICARBONATE [Concomitant]
     Active Substance: SODIUM BICARBONATE
     Dates: start: 20210929
  27. MANNITOL [Concomitant]
     Active Substance: MANNITOL
     Dates: start: 20210910, end: 20210912
  28. MANNITOL [Concomitant]
     Active Substance: MANNITOL
     Dates: start: 20210928, end: 20211001
  29. MANNITOL [Concomitant]
     Active Substance: MANNITOL
     Dates: start: 20210929
  30. MANNITOL [Concomitant]
     Active Substance: MANNITOL
     Route: 042
     Dates: start: 20211110, end: 20211113
  31. FOSAPREPITANT DIMEGLUMINE [Concomitant]
     Active Substance: FOSAPREPITANT DIMEGLUMINE
     Dates: start: 20210910, end: 20210912
  32. FOSAPREPITANT DIMEGLUMINE [Concomitant]
     Active Substance: FOSAPREPITANT DIMEGLUMINE
     Dates: start: 20210929
  33. DIPHENHYDRAMINE HYDROCHLORIDE [Concomitant]
     Active Substance: DIPHENHYDRAMINE HYDROCHLORIDE
     Dates: start: 20210928, end: 20210929
  34. DIPHENHYDRAMINE HYDROCHLORIDE [Concomitant]
     Active Substance: DIPHENHYDRAMINE HYDROCHLORIDE
     Dates: start: 20211021, end: 20211021
  35. DIPHENHYDRAMINE HYDROCHLORIDE [Concomitant]
     Active Substance: DIPHENHYDRAMINE HYDROCHLORIDE
     Route: 030
     Dates: start: 20211203, end: 20211203
  36. DIPHENHYDRAMINE HYDROCHLORIDE [Concomitant]
     Active Substance: DIPHENHYDRAMINE HYDROCHLORIDE
     Dates: start: 20210929
  37. DIPHENHYDRAMINE HYDROCHLORIDE [Concomitant]
     Active Substance: DIPHENHYDRAMINE HYDROCHLORIDE
     Route: 030
     Dates: start: 20211111, end: 20211111
  38. CODEINE [Concomitant]
     Active Substance: CODEINE
     Dates: start: 20211022, end: 20211024
  39. INSULIN NOS [Concomitant]
     Active Substance: INSULIN NOS
     Dates: start: 20211021, end: 20211021
  40. GLYCERIN [Concomitant]
     Active Substance: GLYCERIN
     Dates: start: 20211023, end: 20211023
  41. GLYCERIN [Concomitant]
     Active Substance: GLYCERIN
     Dates: start: 20211018
  42. ETHAMSYLATE [Concomitant]
     Active Substance: ETHAMSYLATE
     Indication: Pulmonary haemorrhage
     Route: 042
     Dates: start: 20210917, end: 20210920
  43. ETHAMSYLATE [Concomitant]
     Active Substance: ETHAMSYLATE
     Route: 042
     Dates: start: 20211025, end: 20211026
  44. ETHAMSYLATE [Concomitant]
     Active Substance: ETHAMSYLATE
     Route: 042
     Dates: start: 20210928, end: 20210929
  45. CARBAZOCHROME SODIUM SULFONATE;SODIUM CHLORIDE [Concomitant]
     Indication: Pulmonary haemorrhage
     Route: 042
     Dates: start: 20211017, end: 20211020
  46. CARBAZOCHROME SODIUM SULFONATE;SODIUM CHLORIDE [Concomitant]
     Route: 042
     Dates: start: 20211025, end: 20211026
  47. COMPOUND LIQUORICE [Concomitant]
     Indication: Cough
     Route: 048
     Dates: start: 20211026, end: 20211026
  48. COMPOUND LIQUORICE [Concomitant]
     Route: 048
     Dates: start: 20211216
  49. PENICILLIN G SODIUM [Concomitant]
     Active Substance: PENICILLIN G SODIUM
     Indication: Bronchitis
     Route: 058
     Dates: start: 20211214, end: 20211214
  50. SAFFLOWER EXTRACT AND ACEGLUTAMIDE [Concomitant]
     Indication: Prophylaxis
     Route: 042
     Dates: start: 20211214, end: 20211214
  51. HEPARIN SODIUM [Concomitant]
     Active Substance: HEPARIN SODIUM
     Dates: start: 20210930, end: 20211001
  52. CARBOCYSTEINE [Concomitant]
     Active Substance: CARBOCYSTEINE
     Route: 048
  53. AMBROXOL HYDROCHLORIDE [Concomitant]
     Active Substance: AMBROXOL HYDROCHLORIDE
     Route: 048
     Dates: start: 20211214, end: 20211219
  54. MEZLOCILLIN SODIUM [Concomitant]
     Active Substance: MEZLOCILLIN SODIUM
     Indication: Bronchitis
     Route: 042
     Dates: start: 20211214, end: 20211223
  55. SALIVAE MILTIORRHIZAE LIGUSPYRAGINE HYDROCHLORIDE AND GLUCOSE [Concomitant]
     Route: 042
     Dates: start: 20211219, end: 20211223
  56. LACTULOSE [Concomitant]
     Active Substance: LACTULOSE
     Indication: Constipation

REACTIONS (1)
  - Pulmonary embolism [Recovering/Resolving]

NARRATIVE: CASE EVENT DATE: 20211214
